FAERS Safety Report 9424764 (Version 1)
Quarter: 2013Q3

REPORT INFORMATION
  Report Type: Spontaneous
  Country: US (occurrence: US)
  Receive Date: 20130729
  Receipt Date: 20130729
  Transmission Date: 20140515
  Serious: Yes (Other)
  Sender: FDA-Public Use
  Company Number: US-PFIZER INC-2013218906

PATIENT
  Age: 51 Year
  Sex: Female
  Weight: 61.22 kg

DRUGS (1)
  1. NEURONTIN [Suspect]
     Dosage: 600 MG, 3X/DAY

REACTIONS (5)
  - Intervertebral disc injury [Unknown]
  - Fall [Unknown]
  - Back injury [Unknown]
  - Back pain [Unknown]
  - Neck pain [Unknown]
